FAERS Safety Report 16244161 (Version 5)
Quarter: 2019Q4

REPORT INFORMATION
  Report Type: Spontaneous
  Country: AT (occurrence: AT)
  Receive Date: 20190426
  Receipt Date: 20191226
  Transmission Date: 20200122
  Serious: Yes (Hospitalization, Other)
  Sender: FDA-Public Use
  Company Number: PHHY2015AT024819

PATIENT
  Age: 39 Year
  Sex: Female
  Weight: 58 kg

DRUGS (1)
  1. GILENYA [Suspect]
     Active Substance: FINGOLIMOD HYDROCHLORIDE
     Indication: MULTIPLE SCLEROSIS
     Route: 065

REACTIONS (13)
  - Fistula inflammation [Recovered/Resolved]
  - Feeling abnormal [Recovered/Resolved]
  - Maternal exposure timing unspecified [Unknown]
  - Depression [Unknown]
  - Vision blurred [Recovered/Resolved]
  - Gastrointestinal disorder [Not Recovered/Not Resolved]
  - Alopecia [Recovered/Resolved]
  - Pregnancy on contraceptive [Unknown]
  - Vertigo positional [Recovered/Resolved]
  - Ectopic pregnancy [Unknown]
  - Affective disorder [Recovered/Resolved]
  - Gamma-glutamyltransferase increased [Unknown]
  - Breast disorder [Recovered/Resolved]

NARRATIVE: CASE EVENT DATE: 20150123
